FAERS Safety Report 23204258 (Version 1)
Quarter: 2023Q4

REPORT INFORMATION
  Report Type: Spontaneous
  Country: BT (occurrence: BT)
  Receive Date: 20231120
  Receipt Date: 20231120
  Transmission Date: 20240110
  Serious: Yes (Other)
  Sender: FDA-Public Use
  Company Number: BT-Long Grove-000018

PATIENT
  Age: 44 Year
  Sex: Female

DRUGS (3)
  1. TRIAMCINOLONE ACETONIDE [Suspect]
     Active Substance: TRIAMCINOLONE ACETONIDE
     Indication: Oral submucosal fibrosis
     Dosage: INTRALESIONAL INJECTIONS ONCE A WEEK
     Route: 026
  2. VITAMIN C [Concomitant]
     Active Substance: ASCORBIC ACID
     Route: 048
  3. VITAMIN B [Concomitant]
     Active Substance: VITAMIN B
     Dosage: 1 TABLET, TWICE DAILY
     Route: 048

REACTIONS (1)
  - Cushing^s syndrome [Recovered/Resolved]
